FAERS Safety Report 12217281 (Version 1)
Quarter: 2016Q1

REPORT INFORMATION
  Report Type: Spontaneous
  Country: GB (occurrence: GB)
  Receive Date: 20160329
  Receipt Date: 20160329
  Transmission Date: 20160526
  Serious: Yes (Disabling, Other)
  Sender: FDA-Public Use
  Company Number: GB-TEVA-332837ISR

PATIENT
  Age: 59 Year
  Sex: Female
  Weight: 63.95 kg

DRUGS (4)
  1. ATENOLOL. [Concomitant]
     Active Substance: ATENOLOL
  2. CANDESARTAN [Concomitant]
     Active Substance: CANDESARTAN
  3. EZETIMIBE. [Concomitant]
     Active Substance: EZETIMIBE
  4. DOXAZOSIN [Suspect]
     Active Substance: DOXAZOSIN\DOXAZOSIN MESYLATE
     Route: 065

REACTIONS (7)
  - Musculoskeletal pain [Unknown]
  - Paralysis [Recovered/Resolved with Sequelae]
  - Muscular weakness [Not Recovered/Not Resolved]
  - Blindness transient [Recovered/Resolved]
  - Central core disease [Not Recovered/Not Resolved]
  - Gait disturbance [Not Recovered/Not Resolved]
  - Pain in extremity [Unknown]

NARRATIVE: CASE EVENT DATE: 20120315
